FAERS Safety Report 4830183-0 (Version None)
Quarter: 2005Q4

REPORT INFORMATION
  Report Type: 
  Country: None (occurrence: None)
  Receive Date: 20051117
  Receipt Date: 20050517
  Transmission Date: 20060501
  Serious: Yes (Hospitalization)
  Sender: FDA-Public Use
  Company Number: US-MERCK-0505USA02124

PATIENT
  Age: 61 Year
  Sex: Male
  Weight: 77 kg

DRUGS (12)
  1. DESOXIMETASONE [Concomitant]
     Indication: PSORIASIS
     Route: 065
  2. ALPRAZOLAM [Concomitant]
     Indication: SLEEP DISORDER
     Route: 065
  3. HYDROXYZINE HYDROCHLORIDE [Concomitant]
     Indication: PRURITUS
     Route: 065
  4. DOVONEX [Concomitant]
     Indication: PSORIASIS
     Route: 065
  5. TRIAMCINOLONE [Concomitant]
     Route: 065
  6. PRILOSEC [Concomitant]
     Indication: GASTRIC ULCER
     Route: 065
  7. ISOSORBIDE [Concomitant]
     Route: 065
     Dates: start: 20000101
  8. COZAAR [Concomitant]
     Route: 065
  9. VIOXX [Suspect]
     Indication: ARTHRITIS
     Route: 048
     Dates: start: 20001001, end: 20040101
  10. RELAFEN [Concomitant]
     Route: 065
     Dates: start: 19800101, end: 20000101
  11. PAMINE BROMIDE [Concomitant]
     Indication: ULCER
     Route: 065
  12. NEXIUM [Concomitant]
     Indication: ULCER
     Route: 065

REACTIONS (8)
  - ACUTE MYOCARDIAL INFARCTION [None]
  - ARTERIOSCLEROSIS [None]
  - BLOOD CHOLESTEROL INCREASED [None]
  - CORONARY ARTERY DISEASE [None]
  - MICROCYTOSIS [None]
  - THROMBOCYTOPENIA [None]
  - TRANSFERRIN SATURATION DECREASED [None]
  - VENTRICULAR TACHYCARDIA [None]
